FAERS Safety Report 4405927-2 (Version None)
Quarter: 2004Q3

REPORT INFORMATION
  Report Type: 
  Country: None (occurrence: None)
  Receive Date: 20040723
  Receipt Date: 20040209
  Transmission Date: 20050211
  Serious: No
  Sender: FDA-Public Use
  Company Number: 04-01-0140

PATIENT
  Age: 67 Year
  Sex: Male

DRUGS (3)
  1. AVANDIA [Suspect]
     Indication: ILL-DEFINED DISORDER
     Route: 048
     Dates: start: 20030801
  2. QUININE [Suspect]
     Route: 048
     Dates: start: 20000101, end: 20030101
  3. LIPITOR [Concomitant]
     Indication: PANCREATITIS
     Dates: start: 20030101

REACTIONS (5)
  - HYPERHIDROSIS [None]
  - MALARIA [None]
  - PYREXIA [None]
  - TREMOR [None]
  - VOMITING [None]
